FAERS Safety Report 18235728 (Version 3)
Quarter: 2021Q1

REPORT INFORMATION
  Report Type: Report from Study
  Country: US (occurrence: US)
  Receive Date: 20200905
  Receipt Date: 20210121
  Transmission Date: 20210419
  Serious: No
  Sender: FDA-Public Use
  Company Number: NVSC2020US243610

PATIENT
  Age: 62 Year
  Sex: Male

DRUGS (2)
  1. ENTRESTO [Suspect]
     Active Substance: SACUBITRIL\VALSARTAN
     Dosage: 0.5 DF (49/51MG), BID
     Route: 065
     Dates: start: 202008
  2. ENTRESTO [Suspect]
     Active Substance: SACUBITRIL\VALSARTAN
     Indication: PRODUCT USED FOR UNKNOWN INDICATION
     Dosage: 100 MG (49/51MG), BID
     Route: 048
     Dates: start: 202008

REACTIONS (4)
  - Intentional product misuse [Unknown]
  - Fatigue [Unknown]
  - Wrong technique in product usage process [Unknown]
  - Ejection fraction abnormal [Recovering/Resolving]

NARRATIVE: CASE EVENT DATE: 202008
